FAERS Safety Report 5930153-5 (Version None)
Quarter: 2008Q4

REPORT INFORMATION
  Report Type: 
  Country: None (occurrence: None)
  Receive Date: 20081009
  Receipt Date: 20080327
  Transmission Date: 20090506
  Serious: Yes (Disabling, Other)
  Sender: FDA-Public Use
  Company Number: PHEH2008US01630

PATIENT
  Age: 80 Year
  Sex: Male
  Weight: 70.7 kg

DRUGS (3)
  1. ZOMETA [Suspect]
     Indication: PROSTATE CANCER METASTATIC
     Dosage: 4 MG, Q3WEEKS, INTRAVENOUS : 3.5MG, Q3WEEKS, INTRAVENOUS
     Route: 042
     Dates: start: 20070103, end: 20071003
  2. ZOMETA [Suspect]
     Indication: PROSTATE CANCER METASTATIC
     Dosage: 4 MG, Q3WEEKS, INTRAVENOUS : 3.5MG, Q3WEEKS, INTRAVENOUS
     Route: 042
     Dates: start: 20070509, end: 20071003
  3. CHEMOTHERAPEUTICS NOS (NO INGREDIENTS/SUBSTANCES) [Concomitant]

REACTIONS (15)
  - ASTHENIA [None]
  - BIOPSY [None]
  - BONE DEBRIDEMENT [None]
  - BREATH ODOUR [None]
  - CENTRAL VENOUS CATHETERISATION [None]
  - DENTAL PLAQUE [None]
  - DEPRESSION [None]
  - IMPAIRED DRIVING ABILITY [None]
  - INCISION SITE COMPLICATION [None]
  - INFECTION [None]
  - OSTEONECROSIS [None]
  - PAIN IN JAW [None]
  - SWELLING [None]
  - TOOTH EXTRACTION [None]
  - WOUND TREATMENT [None]
